FAERS Safety Report 17624368 (Version 1)
Quarter: 2020Q2

REPORT INFORMATION
  Report Type: Spontaneous
  Country: US (occurrence: US)
  Receive Date: 20200403
  Receipt Date: 20200403
  Transmission Date: 20200713
  Serious: Yes (Other)
  Sender: FDA-Public Use
  Company Number: US-SA-2020SA079923

PATIENT
  Age: 76 Year
  Sex: Male

DRUGS (1)
  1. XYZAL ALLERGY 24HR [Suspect]
     Active Substance: LEVOCETIRIZINE DIHYDROCHLORIDE
     Indication: RHINORRHOEA
     Dosage: 5 MG, 1X
     Route: 065
     Dates: start: 20200326, end: 20200326

REACTIONS (5)
  - Rash [Unknown]
  - Hypoventilation [Unknown]
  - Feeling abnormal [Unknown]
  - Hyperhidrosis [Unknown]
  - Dehydration [Unknown]
